FAERS Safety Report 20757841 (Version 5)
Quarter: 2023Q2

REPORT INFORMATION
  Report Type: Report from Study
  Country: NL (occurrence: None)
  Receive Date: 20220427
  Receipt Date: 20230405
  Transmission Date: 20230721
  Serious: Yes (Death, Hospitalization, Other)
  Sender: FDA-Public Use
  Company Number: NL-ROCHE-3082439

PATIENT
  Age: 74 Year
  Sex: Male

DRUGS (2)
  1. OBINUTUZUMAB [Suspect]
     Active Substance: OBINUTUZUMAB
     Indication: Chronic lymphocytic leukaemia
     Dosage: 13/DEC/2021: DATE OF LAST DOSE OF OBINUTUZUMAB PRIOR TO SAE.
     Route: 042
     Dates: start: 20210719, end: 20211213
  2. VENETOCLAX [Suspect]
     Active Substance: VENETOCLAX
     Indication: Chronic lymphocytic leukaemia
     Dosage: 12/APR/2022:DATE OF LAST DOSE OF VENETOCLAX PRIOR TO SAE.
     Route: 048
     Dates: start: 20210816, end: 20220414

REACTIONS (2)
  - COVID-19 [Fatal]
  - Pneumonia [Not Recovered/Not Resolved]

NARRATIVE: CASE EVENT DATE: 20220412
